FAERS Safety Report 13323147 (Version 2)
Quarter: 2017Q2

REPORT INFORMATION
  Report Type: Spontaneous
  Country: JP (occurrence: JP)
  Receive Date: 20170310
  Receipt Date: 20170419
  Transmission Date: 20170830
  Serious: Yes (Hospitalization)
  Sender: FDA-Public Use
  Company Number: JP-SA-2017SA038938

PATIENT
  Age: 80 Year
  Sex: Female

DRUGS (6)
  1. TS-1 [Concomitant]
     Active Substance: GIMERACIL\OTERACIL\TEGAFUR
     Indication: LUNG CANCER METASTATIC
     Route: 065
     Dates: start: 201506
  2. ELPLAT [Suspect]
     Active Substance: OXALIPLATIN
     Indication: COLORECTAL CANCER
     Route: 041
  3. TS-1 [Concomitant]
     Active Substance: GIMERACIL\OTERACIL\TEGAFUR
     Indication: COLORECTAL CANCER
     Route: 065
     Dates: start: 201506
  4. ELPLAT [Suspect]
     Active Substance: OXALIPLATIN
     Indication: COLORECTAL CANCER
     Route: 041
     Dates: start: 201506
  5. ELPLAT [Suspect]
     Active Substance: OXALIPLATIN
     Indication: LUNG CANCER METASTATIC
     Route: 041
     Dates: start: 201506
  6. ELPLAT [Suspect]
     Active Substance: OXALIPLATIN
     Indication: LUNG CANCER METASTATIC
     Route: 041

REACTIONS (8)
  - Haematuria [Recovering/Resolving]
  - Gastric ulcer [Recovering/Resolving]
  - Erythema [Recovering/Resolving]
  - Ischaemic gastritis [Recovering/Resolving]
  - Oedema [Recovering/Resolving]
  - Gastrointestinal erosion [Recovering/Resolving]
  - Decreased appetite [Recovering/Resolving]
  - Anaemia [Recovering/Resolving]
